FAERS Safety Report 10346813 (Version 1)
Quarter: 2014Q3

REPORT INFORMATION
  Report Type: Report from Study
  Country: US (occurrence: US)
  Receive Date: 20140729
  Receipt Date: 20140729
  Transmission Date: 20150326
  Serious: Yes (Other)
  Sender: FDA-Public Use
  Company Number: US-ROCHE-1441114

PATIENT
  Sex: Male
  Weight: 33.66 kg

DRUGS (3)
  1. TUMS [Concomitant]
     Active Substance: CALCIUM CARBONATE
  2. NUTROPIN [Suspect]
     Active Substance: SOMATROPIN
     Indication: GROWTH HORMONE DEFICIENCY
     Route: 058
  3. FOCALIN [Concomitant]
     Active Substance: DEXMETHYLPHENIDATE HYDROCHLORIDE

REACTIONS (4)
  - Nausea [Unknown]
  - Pain [Unknown]
  - Hypersensitivity [Recovering/Resolving]
  - Hyperhidrosis [Unknown]
